FAERS Safety Report 5315243-2 (Version None)
Quarter: 2007Q2

REPORT INFORMATION
  Report Type: 
  Country: None (occurrence: None)
  Receive Date: 20070502
  Receipt Date: 20070420
  Transmission Date: 20071010
  Serious: Yes (Hospitalization, Other)
  Sender: FDA-Public Use
  Company Number: US-PFIZER INC-2007032090

PATIENT
  Sex: Female
  Weight: 57.6 kg

DRUGS (3)
  1. CHANTIX [Suspect]
     Indication: EX-SMOKER
     Dates: start: 20061101
  2. FORMOTEROL FUMARATE [Concomitant]
  3. PREDNISONE TAB [Concomitant]

REACTIONS (4)
  - BLOOD CALCIUM DECREASED [None]
  - INTENTIONAL DRUG MISUSE [None]
  - NAUSEA [None]
  - PNEUMONIA [None]
